FAERS Safety Report 16085759 (Version 1)
Quarter: 2019Q1

REPORT INFORMATION
  Report Type: Report from Study
  Country: US (occurrence: US)
  Receive Date: 20190318
  Receipt Date: 20190318
  Transmission Date: 20190418
  Serious: Yes (Other)
  Sender: FDA-Public Use
  Company Number: US-BAYER-2019-049442

PATIENT
  Age: 45 Year
  Sex: Female

DRUGS (2)
  1. CLOPIDOGREL [Interacting]
     Active Substance: CLOPIDOGREL BISULFATE
     Indication: ANTIPLATELET THERAPY
     Dosage: 75 MG, QD
  2. ASPIRIN 81 MG [Suspect]
     Active Substance: ASPIRIN
     Indication: ANTIPLATELET THERAPY
     Dosage: 81 MG, QD

REACTIONS (5)
  - Cerebral infarction [None]
  - Labelled drug-drug interaction medication error [None]
  - Product administration error [None]
  - Cerebral haemorrhage [None]
  - Subarachnoid haemorrhage [None]
